FAERS Safety Report 17947520 (Version 1)
Quarter: 2020Q2

REPORT INFORMATION
  Report Type: Spontaneous
  Country: US (occurrence: US)
  Receive Date: 20200625
  Receipt Date: 20200625
  Transmission Date: 20200714
  Serious: No
  Sender: FDA-Public Use
  Company Number: None

PATIENT
  Age: 43 Year
  Sex: Female
  Weight: 81 kg

DRUGS (1)
  1. ETONOGESTRWL/ETHINYL ESTRADIOL VAGINAL RING [Suspect]
     Active Substance: ETHINYL ESTRADIOL\ETONOGESTREL
     Indication: CONTRACEPTION
     Dosage: ?          QUANTITY:1 RING;OTHER FREQUENCY:EVERY 3 WEEKS;?
     Route: 067
     Dates: start: 20200603, end: 20200621

REACTIONS (9)
  - Vulvovaginal pain [None]
  - Vulvovaginal discomfort [None]
  - Dysuria [None]
  - Dyspareunia [None]
  - Vulvovaginal pruritus [None]
  - Product quality issue [None]
  - Insomnia [None]
  - Impaired quality of life [None]
  - Product substitution issue [None]

NARRATIVE: CASE EVENT DATE: 20200603
